FAERS Safety Report 7911095-2 (Version None)
Quarter: 2011Q4

REPORT INFORMATION
  Report Type: 
  Country: None (occurrence: None)
  Receive Date: 20111108
  Receipt Date: 20111102
  Transmission Date: 20120403
  Serious: Yes (Hospitalization)
  Sender: FDA-Public Use
  Company Number: 2011SP048264

PATIENT
  Age: 63 Year
  Sex: Male

DRUGS (2)
  1. GEMCITABINE [Concomitant]
  2. DEXAMETHASONE [Suspect]
     Indication: PRODUCT USED FOR UNKNOWN INDICATION
     Dosage: 4.00 MG;BID
     Dates: end: 20110831

REACTIONS (7)
  - ASCITES [None]
  - ESCHERICHIA SEPSIS [None]
  - FATIGUE [None]
  - PULMONARY EMBOLISM [None]
  - BILIARY SEPSIS [None]
  - TACHYCARDIA [None]
  - WHITE BLOOD CELL COUNT INCREASED [None]
